FAERS Safety Report 4600702-8 (Version None)
Quarter: 2005Q1

REPORT INFORMATION
  Report Type: 
  Country: None (occurrence: None)
  Receive Date: 20050307
  Receipt Date: 20030507
  Transmission Date: 20050727
  Serious: Yes (Hospitalization, Other)
  Sender: FDA-Public Use
  Company Number: US-MERCK-0305USA01304

PATIENT
  Age: 52 Year
  Sex: Female
  Weight: 51 kg

DRUGS (16)
  1. ZOCOR [Suspect]
     Route: 048
     Dates: start: 19950101, end: 19970601
  2. ZOCOR [Suspect]
     Route: 048
     Dates: start: 20020712, end: 20021001
  3. ZOCOR [Suspect]
     Route: 048
     Dates: start: 20021022, end: 20021101
  4. ZOCOR [Suspect]
     Route: 048
     Dates: start: 20010810
  5. LASIX [Concomitant]
     Route: 065
  6. SERZONE [Concomitant]
     Route: 065
  7. LOPID [Suspect]
     Route: 048
     Dates: start: 20020713, end: 20021101
  8. LORAZEPAM [Concomitant]
     Route: 065
  9. TOPROL-XL [Concomitant]
     Route: 065
  10. SPIRONOLACTONE [Concomitant]
     Route: 065
  11. ULTRACET [Concomitant]
     Route: 065
  12. BIAXIN XL [Concomitant]
     Route: 065
     Dates: start: 20021004
  13. VIOXX [Concomitant]
     Route: 065
  14. NEXIUM [Concomitant]
     Route: 065
  15. VANCERIL [Concomitant]
     Route: 065
  16. LESCOL [Concomitant]
     Route: 048
     Dates: start: 20010816

REACTIONS (76)
  - ABDOMINAL PAIN UPPER [None]
  - ANAEMIA [None]
  - ANURIA [None]
  - ARTHRALGIA [None]
  - ARTHRITIS [None]
  - ARTHROPOD BITE [None]
  - ASTHENIA [None]
  - BACK PAIN [None]
  - BALANCE DISORDER [None]
  - BLOOD PARATHYROID HORMONE INCREASED [None]
  - BLOOD PRESSURE DECREASED [None]
  - BRONCHIAL INFECTION [None]
  - BRONCHITIS [None]
  - BRONCHOPNEUMONIA [None]
  - CARDIOMYOPATHY [None]
  - CHEST WALL PAIN [None]
  - CONSTIPATION [None]
  - DEHYDRATION [None]
  - DISORIENTATION [None]
  - DIVERTICULUM [None]
  - DIZZINESS [None]
  - DYSSTASIA [None]
  - DYSURIA [None]
  - EAR PAIN [None]
  - FALL [None]
  - FATIGUE [None]
  - FIBROMYALGIA [None]
  - FIBROSIS [None]
  - FLUID RETENTION [None]
  - FREE THYROXINE INDEX DECREASED [None]
  - HYPERPLASIA [None]
  - HYPERSENSITIVITY [None]
  - HYPOAESTHESIA [None]
  - HYPOTONIA [None]
  - INCREASED TENDENCY TO BRUISE [None]
  - INFLUENZA [None]
  - INSOMNIA [None]
  - JOINT INJURY [None]
  - JOINT SPRAIN [None]
  - LIMB INJURY [None]
  - LOSS OF CONSCIOUSNESS [None]
  - MELAENA [None]
  - MUSCLE SPASMS [None]
  - MUSCLE STRAIN [None]
  - MUSCULAR WEAKNESS [None]
  - MYOPATHY [None]
  - NAUSEA [None]
  - NERVOUS SYSTEM DISORDER [None]
  - NIGHTMARE [None]
  - OEDEMA PERIPHERAL [None]
  - OSTEOPOROSIS [None]
  - PAIN [None]
  - PAIN IN EXTREMITY [None]
  - PAINFUL DEFAECATION [None]
  - PARAESTHESIA [None]
  - PEPTIC ULCER [None]
  - PERIPHERAL SENSORY NEUROPATHY [None]
  - PRESCRIBED OVERDOSE [None]
  - PYREXIA [None]
  - RASH [None]
  - RENAL CYST [None]
  - RENAL FAILURE CHRONIC [None]
  - RHABDOMYOLYSIS [None]
  - SCAR [None]
  - SPEECH DISORDER [None]
  - SPONDYLITIS [None]
  - STOMACH DISCOMFORT [None]
  - SWELLING FACE [None]
  - SYNCOPE [None]
  - TACHYCARDIA [None]
  - THINKING ABNORMAL [None]
  - THYROXINE DECREASED [None]
  - TOE OPERATION [None]
  - UPPER RESPIRATORY TRACT INFECTION [None]
  - URINARY TRACT INFECTION [None]
  - WEIGHT INCREASED [None]
